FAERS Safety Report 5404737-7 (Version None)
Quarter: 2007Q3

REPORT INFORMATION
  Report Type: 
  Country: None (occurrence: None)
  Receive Date: 20070801
  Receipt Date: 20070717
  Transmission Date: 20080115
  Serious: Yes (Death)
  Sender: FDA-Public Use
  Company Number: 2007001309

PATIENT
  Age: 71 Year
  Sex: Male

DRUGS (1)
  1. TARCEVA [Suspect]
     Dosage: (QD), ORAL
     Route: 048
     Dates: start: 20070419, end: 20070422

REACTIONS (1)
  - DEATH [None]
